FAERS Safety Report 4719559-X (Version None)
Quarter: 2005Q3

REPORT INFORMATION
  Report Type: 
  Country: None (occurrence: None)
  Receive Date: 20050719
  Receipt Date: 20050707
  Transmission Date: 20060218
  Serious: Yes (Hospitalization, Other)
  Sender: FDA-Public Use
  Company Number: HQWYE044908JUL05

PATIENT
  Age: 53 Year
  Sex: Female

DRUGS (6)
  1. ETODOLAC [Suspect]
     Indication: RHEUMATOID ARTHRITIS
     Dosage: 400 MG 1X PER 1 WK ORAL
     Route: 048
     Dates: start: 20050430, end: 20050513
  2. AMLODIPINE BESYLATE [Concomitant]
  3. ATENOLOL [Concomitant]
  4. LOSARTAN POTASSIUM [Concomitant]
  5. ACARBOSE (ACARBOSE) [Concomitant]
  6. NIFEDIPINE [Concomitant]

REACTIONS (5)
  - HAEMOGLOBIN DECREASED [None]
  - OEDEMA PERIPHERAL [None]
  - PYREXIA [None]
  - RED BLOOD CELL COUNT DECREASED [None]
  - WHITE BLOOD CELL COUNT INCREASED [None]
